FAERS Safety Report 7001771-0 (Version None)
Quarter: 2010Q3

REPORT INFORMATION
  Report Type: 
  Country: None (occurrence: None)
  Receive Date: 20100920
  Receipt Date: 20070531
  Transmission Date: 20110219
  Serious: Yes (Hospitalization, Other)
  Sender: FDA-Public Use
  Company Number: US-ASTRAZENECA-2006UW24082

PATIENT
  Age: 520 Month
  Sex: Female
  Weight: 86.6 kg

DRUGS (14)
  1. SEROQUEL [Suspect]
     Indication: SCHIZOPHRENIA
     Dosage: 200 MG TO 400 MG
     Route: 048
     Dates: start: 20010101
  2. SEROQUEL [Suspect]
     Dosage: 100-500MG
     Route: 048
     Dates: start: 20020107
  3. ZYPREXA [Suspect]
     Dosage: 5-30MG
     Dates: start: 20001110
  4. ABILIFY [Concomitant]
  5. GEODON [Concomitant]
  6. HALDOL [Concomitant]
  7. RISPERDAL [Concomitant]
     Dates: start: 20001109
  8. DEPAKOTE [Concomitant]
     Dates: start: 20001208
  9. AMBIEN [Concomitant]
     Indication: INSOMNIA
     Dosage: 10MG, AS REQUIRED
     Dates: start: 20001109
  10. KLONOPIN [Concomitant]
     Dates: start: 20001109
  11. TRAZODONE HCL [Concomitant]
     Dates: start: 20001110
  12. CELEXA [Concomitant]
     Dates: start: 20001110
  13. TRILEPTAL [Concomitant]
     Dosage: 300-1200MG
     Dates: start: 20030524
  14. WELLBUTRIN [Concomitant]
     Dosage: 150-300MG
     Dates: start: 20011115

REACTIONS (5)
  - DEPRESSION [None]
  - DIABETES MELLITUS [None]
  - DIABETES MELLITUS INADEQUATE CONTROL [None]
  - SUICIDAL IDEATION [None]
  - TARDIVE DYSKINESIA [None]
